FAERS Safety Report 10576644 (Version 1)
Quarter: 2014Q4

REPORT INFORMATION
  Report Type: Spontaneous
  Country: US (occurrence: None)
  Receive Date: 20141110
  Receipt Date: 20141110
  Transmission Date: 20150529
  Serious: Yes (Other)
  Sender: FDA-Public Use
  Company Number: None

PATIENT
  Age: 38 Year
  Sex: Female
  Weight: 79.38 kg

DRUGS (1)
  1. ROCEFIN [Suspect]
     Active Substance: CEFTRIAXONE SODIUM
     Indication: URINARY TRACT INFECTION
     Dosage: SMALL BAG IV, ONCE, INTO A VEIN
     Route: 042
     Dates: start: 20141104, end: 20141104

REACTIONS (4)
  - Pain in extremity [None]
  - Crying [None]
  - Headache [None]
  - Tremor [None]

NARRATIVE: CASE EVENT DATE: 20141104
